FAERS Safety Report 24702644 (Version 1)
Quarter: 2024Q4

REPORT INFORMATION
  Report Type: Spontaneous
  Country: US (occurrence: None)
  Receive Date: 20241205
  Receipt Date: 20241205
  Transmission Date: 20250114
  Serious: No
  Sender: Public
  Company Number: None

PATIENT
  Age: 77 Year
  Sex: Male
  Weight: 115 kg

DRUGS (2)
  1. ONDANSETRON [Suspect]
     Active Substance: ONDANSETRON
     Indication: Nausea
     Dosage: FREQUENCY : AS NEEDED;?
     Route: 048
     Dates: start: 20191222, end: 20191223
  2. ONDANSETRON [Suspect]
     Active Substance: ONDANSETRON
     Indication: Vomiting

REACTIONS (6)
  - Agitation [None]
  - Confusional state [None]
  - Hallucination [None]
  - Mental status changes [None]
  - Encephalopathy [None]
  - Infection [None]

NARRATIVE: CASE EVENT DATE: 20191222
